FAERS Safety Report 4459584-X (Version None)
Quarter: 2004Q3

REPORT INFORMATION
  Report Type: 
  Country: None (occurrence: None)
  Receive Date: 20040927
  Receipt Date: 20040909
  Transmission Date: 20050211
  Serious: Yes (Hospitalization, Other)
  Sender: FDA-Public Use
  Company Number: PHEH2004US09720

PATIENT
  Age: 77 Year
  Sex: Female
  Weight: 71 kg

DRUGS (7)
  1. ZOMETA [Suspect]
     Indication: MULTIPLE MYELOMA
     Dosage: 4 MG EVERY 4 WEEKS
     Route: 042
     Dates: start: 20040517, end: 20040712
  2. PROCRIT [Concomitant]
  3. VIOXX [Concomitant]
     Indication: ARTHRITIS
     Dosage: 12.5 MG, QD
     Dates: end: 20040803
  4. LEVOXYL [Concomitant]
     Dosage: .75 MG, QD
     Dates: end: 20040831
  5. CALCIUM [Concomitant]
     Dosage: UNK, QD
  6. MULTI-VITAMINS [Concomitant]
     Dosage: UNK, QD
  7. A.A.S. [Concomitant]
     Dosage: 81 MG, QD

REACTIONS (8)
  - BLOOD CREATININE INCREASED [None]
  - BLOOD PRESSURE INCREASED [None]
  - DEHYDRATION [None]
  - FATIGUE [None]
  - NEPHROPATHY [None]
  - RENAL CYST [None]
  - RENAL FAILURE ACUTE [None]
  - RENAL INTERSTITIAL FIBROSIS [None]
